FAERS Safety Report 22147845 (Version 1)
Quarter: 2023Q1

REPORT INFORMATION
  Report Type: Spontaneous
  Country: US (occurrence: US)
  Receive Date: 20230328
  Receipt Date: 20230328
  Transmission Date: 20230417
  Serious: Yes (Hospitalization, Other)
  Sender: FDA-Public Use
  Company Number: US-OTSUKA-2023_007594

PATIENT
  Sex: Male

DRUGS (1)
  1. ABILIFY MAINTENA [Suspect]
     Active Substance: ARIPIPRAZOLE
     Indication: Schizophrenia
     Dosage: FEW YEARS AGO
     Route: 030

REACTIONS (5)
  - Emotional disorder [Unknown]
  - Hallucination [Unknown]
  - Delusion [Unknown]
  - Sleep disorder [Unknown]
  - Depressed mood [Unknown]
